FAERS Safety Report 23460710 (Version 1)
Quarter: 2024Q1

REPORT INFORMATION
  Report Type: Spontaneous
  Country: US (occurrence: US)
  Receive Date: 20240131
  Receipt Date: 20240131
  Transmission Date: 20240409
  Serious: Yes (Other)
  Sender: FDA-Public Use
  Company Number: US-JNJFOC-20240177755

PATIENT
  Sex: Male

DRUGS (2)
  1. XARELTO [Suspect]
     Active Substance: RIVAROXABAN
     Indication: Thrombosis prophylaxis
     Route: 048
  2. XARELTO [Suspect]
     Active Substance: RIVAROXABAN
     Route: 048

REACTIONS (2)
  - Chest pain [Unknown]
  - Hepatic enzyme increased [Unknown]

NARRATIVE: CASE EVENT DATE: 20240126
